FAERS Safety Report 6371796-7 (Version None)
Quarter: 2009Q3

REPORT INFORMATION
  Report Type: 
  Country: None (occurrence: None)
  Receive Date: 20090918
  Receipt Date: 20090918
  Transmission Date: 20100115
  Serious: No
  Sender: FDA-Public Use
  Company Number: None

PATIENT
  Sex: Male
  Weight: 92.3 kg

DRUGS (1)
  1. PROPOFOL [Suspect]
     Dosage: 130MG BOLUSES IV
     Route: 042
     Dates: start: 20090916

REACTIONS (3)
  - CHILLS [None]
  - PROCTALGIA [None]
  - PYREXIA [None]
